FAERS Safety Report 6230009-7 (Version None)
Quarter: 2009Q2

REPORT INFORMATION
  Report Type: 
  Country: None (occurrence: None)
  Receive Date: 20090615
  Receipt Date: 20090605
  Transmission Date: 20091009
  Serious: Yes (Other)
  Sender: FDA-Public Use
  Company Number: BR-AVENTIS-200915926GDDC

PATIENT
  Age: 73 Year
  Sex: Female
  Weight: 79 kg

DRUGS (7)
  1. LANTUS [Suspect]
     Route: 058
     Dates: start: 20080101
  2. INSULIN DETEMIR [Concomitant]
  3. DRUG USED IN DIABETES [Concomitant]
     Dosage: DOSE QUANTITY: 1
     Route: 048
  4. AVANDIA [Concomitant]
     Dosage: DOSE QUANTITY: 1
     Route: 048
  5. AMARYL [Concomitant]
     Dosage: DOSE QUANTITY: 1
     Route: 048
  6. ANGIPRESS                          /00422901/ [Concomitant]
     Indication: BLOOD PRESSURE ABNORMAL
     Dosage: DOSE QUANTITY: 1
     Route: 048
  7. NATRILIX                           /00340101/ [Concomitant]
     Indication: BLOOD PRESSURE ABNORMAL
     Dosage: DOSE QUANTITY: 1
     Route: 048

REACTIONS (9)
  - ANXIETY [None]
  - DECREASED APPETITE [None]
  - DEPRESSION [None]
  - FEAR [None]
  - INJECTION SITE HAEMORRHAGE [None]
  - INJECTION SITE PAIN [None]
  - PANIC ATTACK [None]
  - PSYCHIATRIC SYMPTOM [None]
  - TREMOR [None]
